FAERS Safety Report 10723009 (Version 1)
Quarter: 2015Q1

REPORT INFORMATION
  Report Type: Spontaneous
  Country: ZA (occurrence: None)
  Receive Date: 20150114
  Receipt Date: 20150114
  Transmission Date: 20150721
  Serious: Yes (Hospitalization, Other)
  Sender: FDA-Public Use
  Company Number: ADR-2015-00052

PATIENT
  Sex: Male

DRUGS (4)
  1. ACLASTA [Suspect]
     Active Substance: ZOLEDRONIC ACID
     Indication: PRODUCT USED FOR UNKNOWN INDICATION
     Dosage: INTRAVENOUS
     Route: 042
     Dates: start: 201112
  2. LIORESAL [Suspect]
     Active Substance: BACLOFEN
     Indication: MUSCLE SPASMS
     Dosage: 10 MG
     Dates: start: 1996
  3. TOPZOLE (PANTOPRAZOLE SODIUM SESQUIHYDRATE) [Concomitant]
  4. XATRAL (ALFUZOSIN HYDROCHLORIDE) [Concomitant]

REACTIONS (2)
  - Clavicle fracture [None]
  - Fall [None]
